FAERS Safety Report 18192528 (Version 1)
Quarter: 2020Q3

REPORT INFORMATION
  Report Type: Spontaneous
  Country: ES (occurrence: ES)
  Receive Date: 20200825
  Receipt Date: 20200825
  Transmission Date: 20201103
  Serious: Yes (Death, Other)
  Sender: FDA-Public Use
  Company Number: ES-SUN PHARMACEUTICAL INDUSTRIES LTD-2020R1-258358

PATIENT
  Age: 81 Year
  Sex: Male

DRUGS (4)
  1. CAPECITABINE. [Suspect]
     Active Substance: CAPECITABINE
     Indication: COLORECTAL CANCER STAGE IV
     Dosage: UNK
     Route: 065
  2. BEVACIZUMAB. [Suspect]
     Active Substance: BEVACIZUMAB
     Indication: COLORECTAL CANCER STAGE IV
     Dosage: UNK
     Route: 065
  3. BEVACIZUMAB. [Suspect]
     Active Substance: BEVACIZUMAB
     Indication: K-RAS GENE MUTATION
  4. CAPECITABINE. [Suspect]
     Active Substance: CAPECITABINE
     Indication: K-RAS GENE MUTATION

REACTIONS (2)
  - Disease progression [Fatal]
  - Drug ineffective [Unknown]
